FAERS Safety Report 20362658 (Version 4)
Quarter: 2022Q1

REPORT INFORMATION
  Report Type: Other
  Country: CA (occurrence: None)
  Receive Date: 20220121
  Receipt Date: 20220331
  Transmission Date: 20220423
  Serious: Yes (Hospitalization)
  Sender: FDA-Public Use
  Company Number: CA-ROCHE-2571989

PATIENT
  Age: 59 Year
  Sex: Male

DRUGS (13)
  1. OCREVUS [Suspect]
     Active Substance: OCRELIZUMAB
     Indication: Relapsing-remitting multiple sclerosis
     Dosage: 300 MG AT DAY 0 AND 14, THEN 600 MG EVERY 6 MONTH
     Route: 042
     Dates: start: 20200226
  2. ROSUVASTATIN [Concomitant]
     Active Substance: ROSUVASTATIN
     Dosage: BEDTIME FOR CHOLESTEROL
  3. TRINTELLIX [Concomitant]
     Active Substance: VORTIOXETINE HYDROBROMIDE
  4. MODAFINIL [Concomitant]
     Active Substance: MODAFINIL
     Indication: Fatigue
  5. SYMBICORT [Concomitant]
     Active Substance: BUDESONIDE\FORMOTEROL FUMARATE DIHYDRATE
  6. ZOPICLONE [Concomitant]
     Active Substance: ZOPICLONE
     Dosage: FOR SLEEP
  7. TELMISARTAN [Concomitant]
     Active Substance: TELMISARTAN
     Indication: Blood pressure measurement
     Route: 048
  8. CALCIUM [Concomitant]
     Active Substance: CALCIUM
  9. REXULTI [Concomitant]
     Active Substance: BREXPIPRAZOLE
     Indication: Depression
  10. REXULTI [Concomitant]
     Active Substance: BREXPIPRAZOLE
     Indication: Anxiety
  11. COVID-19 VACCINE [Concomitant]
     Dates: start: 20210420
  12. COVID-19 VACCINE [Concomitant]
     Dates: start: 20210610
  13. MODERNA COVID-19 VACCINE [Concomitant]
     Active Substance: ELASOMERAN
     Dosage: RECEIVED MODERNA IN 12/OCT/

REACTIONS (13)
  - COVID-19 [Recovering/Resolving]
  - Therapy non-responder [Not Recovered/Not Resolved]
  - Balance disorder [Recovering/Resolving]
  - Fall [Unknown]
  - Memory impairment [Not Recovered/Not Resolved]
  - Therapeutic response shortened [Not Recovered/Not Resolved]
  - Gait disturbance [Recovered/Resolved]
  - Fatigue [Unknown]
  - Hypertension [Recovered/Resolved]
  - Depression [Not Recovered/Not Resolved]
  - Hypotension [Recovering/Resolving]
  - Asthenia [Not Recovered/Not Resolved]
  - Pain [Not Recovered/Not Resolved]

NARRATIVE: CASE EVENT DATE: 20200316
